FAERS Safety Report 9796539 (Version 1)
Quarter: 2014Q1

REPORT INFORMATION
  Report Type: Spontaneous
  Country: US (occurrence: US)
  Receive Date: 20140103
  Receipt Date: 20140103
  Transmission Date: 20141002
  Serious: No
  Sender: FDA-Public Use
  Company Number: US-009507513-1312USA009535

PATIENT
  Sex: Male

DRUGS (6)
  1. VICTRELIS [Suspect]
     Indication: CHRONIC HEPATITIS C
     Dosage: UNK
     Route: 065
     Dates: start: 20131030
  2. REBETOL [Suspect]
     Indication: CHRONIC HEPATITIS C
     Dosage: 1200 MG, QD
     Route: 048
     Dates: start: 20130925
  3. PEGASYS [Suspect]
     Indication: CHRONIC HEPATITIS C
     Dosage: 180 MICROGRAM, QW
     Route: 058
     Dates: start: 20130925
  4. NEUPOGEN [Concomitant]
     Indication: BLOOD TEST ABNORMAL
     Dosage: SHOTS
  5. BENZONATATE [Concomitant]
  6. AZITHROMYCIN [Concomitant]

REACTIONS (8)
  - Foot fracture [Unknown]
  - Cough [Unknown]
  - Bronchitis [Unknown]
  - Chest discomfort [Unknown]
  - Vision blurred [Unknown]
  - Visual impairment [Unknown]
  - Skin discolouration [Unknown]
  - Abdominal discomfort [Recovered/Resolved]
